FAERS Safety Report 9019710 (Version 6)
Quarter: 2016Q1

REPORT INFORMATION
  Report Type: Spontaneous
  Country: CA (occurrence: CA)
  Receive Date: 20130118
  Receipt Date: 20160122
  Transmission Date: 20160526
  Serious: Yes (Hospitalization, Other)
  Sender: FDA-Public Use
  Company Number: CA-ROCHE-1180723

PATIENT
  Age: 22 Year
  Sex: Female
  Weight: 55 kg

DRUGS (15)
  1. XOLAIR [Suspect]
     Active Substance: OMALIZUMAB
     Route: 058
     Dates: start: 20151223
  2. XOLAIR [Suspect]
     Active Substance: OMALIZUMAB
     Route: 058
     Dates: start: 20160107
  3. HIZENTRA [Concomitant]
     Active Substance: HUMAN IMMUNOGLOBULIN G
  4. XOLAIR [Suspect]
     Active Substance: OMALIZUMAB
     Route: 058
     Dates: start: 20130501
  5. PREDNISONE. [Concomitant]
     Active Substance: PREDNISONE
  6. XOLAIR [Suspect]
     Active Substance: OMALIZUMAB
     Indication: ASTHMA
     Route: 058
     Dates: start: 20130109, end: 20130109
  7. KETOTIFEN [Concomitant]
     Active Substance: KETOTIFEN
  8. MONTELUKAST [Concomitant]
     Active Substance: MONTELUKAST SODIUM
  9. CETIRIZINE [Concomitant]
     Active Substance: CETIRIZINE HYDROCHLORIDE
  10. RANITIDINE [Concomitant]
     Active Substance: RANITIDINE\RANITIDINE HYDROCHLORIDE
  11. SYMBICORT [Concomitant]
     Active Substance: BUDESONIDE\FORMOTEROL FUMARATE DIHYDRATE
  12. PANTOPRAZOLE [Concomitant]
     Active Substance: PANTOPRAZOLE SODIUM
  13. ALVESCO [Concomitant]
     Active Substance: CICLESONIDE
  14. XOLAIR [Suspect]
     Active Substance: OMALIZUMAB
     Route: 058
     Dates: start: 20130529, end: 20130529
  15. DILTIAZEM [Concomitant]
     Active Substance: DILTIAZEM

REACTIONS (6)
  - Anaphylactic reaction [Recovered/Resolved]
  - Angioedema [Unknown]
  - Malaise [Unknown]
  - Idiopathic urticaria [Recovered/Resolved]
  - Weight decreased [Unknown]
  - Blood immunoglobulin E increased [Unknown]

NARRATIVE: CASE EVENT DATE: 20130110
